FAERS Safety Report 5592662-0 (Version None)
Quarter: 2008Q1

REPORT INFORMATION
  Report Type: 
  Country: None (occurrence: None)
  Receive Date: 20080114
  Receipt Date: 20080104
  Transmission Date: 20080703
  Serious: Yes (Life-Threatening, Disabling)
  Sender: FDA-Public Use
  Company Number: 08H-163-0313665-00

PATIENT
  Age: 70 Year
  Sex: Female

DRUGS (1)
  1. HYDROMORPHONE HCL [Suspect]
     Indication: PAIN
     Dosage: 3MG/ML, 0.5 MG DOSE, 30 MIN/LOCKOUT, INTRAVENOUS
     Route: 042
     Dates: start: 20071215, end: 20071216

REACTIONS (4)
  - CARDIAC ARREST [None]
  - DRUG ADMINISTRATION ERROR [None]
  - HYPOXIC ENCEPHALOPATHY [None]
  - RESPIRATORY ARREST [None]
